FAERS Safety Report 5192136-5 (Version None)
Quarter: 2006Q4

REPORT INFORMATION
  Report Type: 
  Country: None (occurrence: None)
  Receive Date: 20061220
  Receipt Date: 20061213
  Transmission Date: 20070319
  Serious: Yes (Hospitalization, Other)
  Sender: FDA-Public Use
  Company Number: 2006SP005929

PATIENT
  Age: 72 Year

DRUGS (4)
  1. TEMOZOLOMIDE [Suspect]
     Indication: ANAPLASTIC ASTROCYTOMA
     Dosage: PO
     Route: 048
  2. METOPROLOL SUCCINATE [Concomitant]
  3. LEVOTHYROXINE SODIUM [Concomitant]
  4. RANITIDINE [Concomitant]

REACTIONS (1)
  - DEEP VEIN THROMBOSIS [None]
